FAERS Safety Report 21035652 (Version 3)
Quarter: 2022Q3

REPORT INFORMATION
  Report Type: Spontaneous
  Country: US (occurrence: US)
  Receive Date: 20220701
  Receipt Date: 20220829
  Transmission Date: 20221026
  Serious: No
  Sender: FDA-Public Use
  Company Number: US-TEVA-2022-US-2045142

PATIENT
  Age: 49 Year
  Sex: Male
  Weight: 92 kg

DRUGS (1)
  1. LIDOCAINE [Suspect]
     Active Substance: LIDOCAINE
     Indication: Back pain
     Route: 061
     Dates: start: 20220525, end: 20220601

REACTIONS (2)
  - Pain [Unknown]
  - Product adhesion issue [Unknown]
